FAERS Safety Report 4592945-7 (Version None)
Quarter: 2005Q1

REPORT INFORMATION
  Report Type: 
  Country: None (occurrence: None)
  Receive Date: 20050228
  Receipt Date: 20050217
  Transmission Date: 20050727
  Serious: Yes (Hospitalization)
  Sender: FDA-Public Use
  Company Number: FR-GLAXOSMITHKLINE-B0372352A

PATIENT
  Age: 59 Year
  Sex: Female

DRUGS (9)
  1. DEROXAT [Suspect]
     Dosage: 40MG PER DAY
     Route: 048
  2. TRIVASTAL [Concomitant]
     Dosage: 150MG PER DAY
     Route: 048
  3. SINEMET [Concomitant]
     Dosage: 200MG PER DAY
     Route: 048
  4. SINEMET [Concomitant]
     Dosage: 250MG PER DAY
  5. SINEMET [Concomitant]
     Dosage: 50MG PER DAY
     Route: 048
  6. SINEMET [Concomitant]
     Dosage: 200MG PER DAY
     Route: 048
  7. TEMESTA [Concomitant]
     Dosage: 1.5TAB PER DAY
     Route: 048
  8. IMOVANE [Concomitant]
     Dosage: 1TAB PER DAY
     Route: 048
  9. MOTILIUM [Concomitant]
     Dosage: 3TAB PER DAY
     Route: 048

REACTIONS (6)
  - COGNITIVE DISORDER [None]
  - FALL [None]
  - HALLUCINATION, VISUAL [None]
  - MEMORY IMPAIRMENT [None]
  - MENTAL IMPAIRMENT [None]
  - VISION BLURRED [None]
